FAERS Safety Report 20507742 (Version 2)
Quarter: 2022Q3

REPORT INFORMATION
  Report Type: Report from Study
  Country: US (occurrence: US)
  Receive Date: 20220223
  Receipt Date: 20220720
  Transmission Date: 20221026
  Serious: Yes (Other)
  Sender: FDA-Public Use
  Company Number: US-BAYER-2022A026865

PATIENT
  Age: 51 Year
  Sex: Female
  Weight: 60.771 kg

DRUGS (5)
  1. GADOBUTROL [Suspect]
     Active Substance: GADOBUTROL
     Indication: Intervertebral disc disorder
     Dosage: UNK, ONCE
  2. DIETARY SUPPLEMENT\HERBALS\MILK THISTLE [Concomitant]
     Active Substance: DIETARY SUPPLEMENT\HERBALS\MILK THISTLE
  3. ALPHA LIPOIC ACID [Concomitant]
     Active Substance: .ALPHA.-LIPOIC ACID
  4. METHYL GUARD [Concomitant]
  5. BIO GEST [Concomitant]

REACTIONS (3)
  - Gadolinium deposition disease [None]
  - Nontherapeutic agent urine positive [Not Recovered/Not Resolved]
  - Cytokine increased [None]
